FAERS Safety Report 22039370 (Version 3)
Quarter: 2023Q2

REPORT INFORMATION
  Report Type: Spontaneous
  Country: JP (occurrence: JP)
  Receive Date: 20230227
  Receipt Date: 20230620
  Transmission Date: 20230722
  Serious: Yes (Hospitalization, Other)
  Sender: FDA-Public Use
  Company Number: JP-GLAXOSMITHKLINE-JP2023JPN028825

PATIENT

DRUGS (12)
  1. DAPRODUSTAT [Suspect]
     Active Substance: DAPRODUSTAT
     Indication: Nephrogenic anaemia
     Dosage: 4 MG, QD
     Route: 048
     Dates: start: 20221019, end: 20221109
  2. DAPRODUSTAT [Suspect]
     Active Substance: DAPRODUSTAT
     Dosage: 2 MG
     Route: 048
     Dates: start: 20221110, end: 20221209
  3. PREDNISOLONE [Concomitant]
     Active Substance: PREDNISOLONE
     Indication: Sarcoidosis
     Dosage: 30 MG, QD
     Route: 048
     Dates: start: 20221019
  4. SULFAMETHOXAZOLE\TRIMETHOPRIM [Concomitant]
     Active Substance: SULFAMETHOXAZOLE\TRIMETHOPRIM
     Indication: Infection prophylaxis
     Dosage: UNK, 3 TIMES A WEEK
     Route: 048
     Dates: start: 20221019
  5. ASPIRIN [Concomitant]
     Active Substance: ASPIRIN
     Dosage: 100 MG, QD
     Route: 048
  6. VONOPRAZAN FUMARATE [Concomitant]
     Active Substance: VONOPRAZAN FUMARATE
     Indication: Gastric ulcer
     Dosage: 10 MG, QD
     Route: 048
  7. RILMAZAFONE HYDROCHLORIDE [Concomitant]
     Active Substance: RILMAZAFONE HYDROCHLORIDE
     Indication: Insomnia
     Dosage: 2 MG, QD
     Route: 048
  8. MAGNESIUM OXIDE [Concomitant]
     Active Substance: MAGNESIUM OXIDE
     Indication: Constipation
     Dosage: 25 MG, TID
     Route: 048
  9. POLAPREZINC [Concomitant]
     Active Substance: POLAPREZINC
     Indication: Gastric ulcer
     Dosage: 75 MG, BID
     Route: 048
  10. LOSARTAN POTASSIUM [Concomitant]
     Active Substance: LOSARTAN POTASSIUM
     Indication: Hypertension
     Dosage: 25 MG, QD
     Route: 048
  11. MIYA-BM [Concomitant]
     Active Substance: CLOSTRIDIUM BUTYRICUM SPORES STRAIN M-55
     Dosage: UNK UNK, TID
     Route: 048
  12. POPIDON GARGLE [Concomitant]
     Indication: Infection prophylaxis
     Dosage: UNK
     Route: 002
     Dates: start: 20221019

REACTIONS (4)
  - Hypothyroidism [Unknown]
  - Hospitalisation [Unknown]
  - Product use issue [Unknown]
  - Off label use [Unknown]

NARRATIVE: CASE EVENT DATE: 20221202
